FAERS Safety Report 6360729-5 (Version None)
Quarter: 2009Q3

REPORT INFORMATION
  Report Type: 
  Country: None (occurrence: None)
  Receive Date: 20090918
  Receipt Date: 20090908
  Transmission Date: 20100115
  Serious: Yes (Congenital Anomaly)
  Sender: FDA-Public Use
  Company Number: GB-RANBAXY-2007RR-10746

PATIENT
  Sex: Female
  Weight: 3.328 kg

DRUGS (1)
  1. CIPROFLAXACIN [Suspect]
     Indication: LOWER RESPIRATORY TRACT INFECTION
     Dosage: 250 MG, BID
     Route: 064
     Dates: start: 20070215, end: 20070219

REACTIONS (1)
  - ABNORMAL PALMAR/PLANTAR CREASES [None]
